FAERS Safety Report 4270464-5 (Version None)
Quarter: 2004Q1

REPORT INFORMATION
  Report Type: 
  Country: None (occurrence: None)
  Receive Date: 20040114
  Receipt Date: 20040106
  Transmission Date: 20041129
  Serious: Yes (Other)
  Sender: FDA-Public Use
  Company Number: GB-GLAXOSMITHKLINE-B0319039A

PATIENT

DRUGS (1)
  1. ZIAGEN [Suspect]

REACTIONS (2)
  - ASTHMA [None]
  - EOSINOPHILIA [None]
